FAERS Safety Report 5710364-4 (Version None)
Quarter: 2008Q2

REPORT INFORMATION
  Report Type: 
  Country: None (occurrence: None)
  Receive Date: 20080418
  Receipt Date: 20080410
  Transmission Date: 20081010
  Serious: Yes (Life-Threatening)
  Sender: FDA-Public Use
  Company Number: FR-ABBOTT-05P-056-0304539-00

PATIENT
  Age: 64 Year
  Sex: Male

DRUGS (18)
  1. LOPINAVIR AND RITONAVIR [Suspect]
     Indication: HIV INFECTION
     Route: 048
     Dates: start: 20050406, end: 20050428
  2. RACECADOTRIL [Concomitant]
     Indication: DIARRHOEA
     Route: 048
     Dates: start: 20050406, end: 20050427
  3. ZIDOVUDINE [Concomitant]
     Indication: HIV INFECTION
     Dosage: NOT REPORTED
  4. LAMIVUDINE [Concomitant]
     Indication: HIV INFECTION
     Dosage: NOT REPORTED
  5. ATENOLOL [Concomitant]
     Indication: ANGINA PECTORIS
     Route: 048
     Dates: start: 20040115
  6. ATENOLOL [Concomitant]
     Indication: CORONARY ARTERY DISEASE
  7. PRAVASTATIN [Concomitant]
     Indication: HYPERCHOLESTEROLAEMIA
     Route: 048
     Dates: start: 20050406
  8. PRAVASTATIN [Concomitant]
     Indication: CORONARY ARTERY DISEASE
  9. LAMIVUDINE + ZIDOVUDINE [Concomitant]
     Indication: HIV INFECTION
     Route: 048
     Dates: start: 20050406
  10. ACETYLSALICYLATE LYSINE [Concomitant]
     Indication: DRUG USE FOR UNKNOWN INDICATION
     Route: 048
     Dates: start: 20030101, end: 20050406
  11. ACETYLSALICYLATE LYSINE [Concomitant]
     Route: 048
     Dates: start: 20040406
  12. FLUINDIONE [Concomitant]
     Indication: DRUG USE FOR UNKNOWN INDICATION
     Dosage: NOT REPORTED
  13. OMEPRAZOLE [Concomitant]
     Indication: DRUG USE FOR UNKNOWN INDICATION
     Dosage: NOT REPORTED
  14. EFAVIRENZ [Concomitant]
     Indication: DRUG USE FOR UNKNOWN INDICATION
     Dosage: NOT REPORTED
  15. ACETYLSALICYLIC ACID SRT [Concomitant]
     Indication: DRUG USE FOR UNKNOWN INDICATION
     Route: 048
     Dates: start: 20030101, end: 20050406
  16. ACETYLSALICYLATE LYSINE [Concomitant]
     Route: 048
     Dates: start: 20050406
  17. AMLODIPINE [Concomitant]
     Indication: CARDIAC DISORDER
     Dosage: NOT REPORTED
  18. ACETYLSALICYLIC ACID SRT [Concomitant]
     Indication: CARDIAC DISORDER
     Dosage: NOT REPORTED

REACTIONS (3)
  - PHLEBITIS [None]
  - PULMONARY EMBOLISM [None]
  - THROMBOSIS [None]
